FAERS Safety Report 8961220 (Version 1)
Quarter: 2012Q4

REPORT INFORMATION
  Report Type: 
  Country: IT (occurrence: IT)
  Receive Date: 20121212
  Receipt Date: 20121212
  Transmission Date: 20130627
  Serious: Yes (Hospitalization)
  Sender: FDA-Public Use
  Company Number: IT-TEVA-374333ISR

PATIENT
  Age: 81 Year
  Sex: Male

DRUGS (5)
  1. CARBOPLATIN [Suspect]
     Indication: LUNG NEOPLASM
     Dates: start: 20120808, end: 20120808
  2. ALIMTA [Suspect]
     Indication: LUNG NEOPLASM
     Dates: start: 20120808, end: 20120808
  3. ZOFRAN [Concomitant]
  4. SOLDESAM [Concomitant]
  5. LANSOX [Concomitant]

REACTIONS (4)
  - Neutropenia [Not Recovered/Not Resolved]
  - Oral candidiasis [Not Recovered/Not Resolved]
  - Pyrexia [Not Recovered/Not Resolved]
  - Decreased appetite [Not Recovered/Not Resolved]
